FAERS Safety Report 7866693-1 (Version None)
Quarter: 2011Q4

REPORT INFORMATION
  Report Type: 
  Country: None (occurrence: None)
  Receive Date: 20111028
  Receipt Date: 20110801
  Transmission Date: 20120403
  Serious: No
  Sender: FDA-Public Use
  Company Number: US-GLAXOSMITHKLINE-A0939280A

PATIENT
  Age: 53 Year
  Sex: Female
  Weight: 100.9 kg

DRUGS (2)
  1. NO CONCURRENT MEDICATION [Concomitant]
  2. ADVAIR DISKUS 100/50 [Suspect]
     Indication: ASTHMA
     Dosage: 1PUFF TWICE PER DAY
     Route: 055
     Dates: start: 20110615

REACTIONS (5)
  - INSOMNIA [None]
  - SINUSITIS [None]
  - TINNITUS [None]
  - PALPITATIONS [None]
  - HEADACHE [None]
